FAERS Safety Report 6909531-3 (Version None)
Quarter: 2010Q3

REPORT INFORMATION
  Report Type: 
  Country: None (occurrence: None)
  Receive Date: 20100805
  Receipt Date: 20100728
  Transmission Date: 20110219
  Serious: Yes (Hospitalization, Other)
  Sender: FDA-Public Use
  Company Number: US-AMGEN-KDL424208

PATIENT
  Sex: Female
  Weight: 90.8 kg

DRUGS (1)
  1. ENBREL [Suspect]
     Indication: PSORIATIC ARTHROPATHY
     Route: 058
     Dates: start: 20061012, end: 20100419

REACTIONS (3)
  - DIVERTICULITIS [None]
  - HAEMANGIOMA OF SPLEEN [None]
  - LOCALISED INTRAABDOMINAL FLUID COLLECTION [None]
